FAERS Safety Report 6971820-4 (Version None)
Quarter: 2010Q3

REPORT INFORMATION
  Report Type: 
  Country: None (occurrence: None)
  Receive Date: 20100908
  Receipt Date: 20100830
  Transmission Date: 20110219
  Serious: Yes (Other)
  Sender: FDA-Public Use
  Company Number: US-AMGEN-QUU434929

PATIENT
  Sex: Female

DRUGS (3)
  1. NPLATE [Suspect]
     Indication: IDIOPATHIC THROMBOCYTOPENIC PURPURA
     Dates: start: 20090304, end: 20090708
  2. CORTICOSTEROIDS [Concomitant]
     Dates: start: 20090224
  3. RITUXIMAB [Concomitant]

REACTIONS (1)
  - SPLENECTOMY [None]
